FAERS Safety Report 5089069-1 (Version None)
Quarter: 2006Q3

REPORT INFORMATION
  Report Type: 
  Country: None (occurrence: None)
  Receive Date: 20060822
  Receipt Date: 20060803
  Transmission Date: 20061208
  Serious: Yes (Death, Hospitalization, Other)
  Sender: FDA-Public Use
  Company Number: SE200608000670

PATIENT
  Age: 64 Year
  Sex: Male

DRUGS (5)
  1. PEMETREXED (PEMETREXED) VIAL [Suspect]
     Indication: LUNG NEOPLASM MALIGNANT
     Dosage: 950 MG, OTHER, INTRAVENOUS
     Route: 042
     Dates: start: 20060331
  2. FOLACIN (CALCIUM PHOSPHATE, FOLIC ACID) [Concomitant]
  3. BETAPRED [Concomitant]
  4. SPIRONOLACTONE [Concomitant]
  5. OXYCONTIN [Concomitant]

REACTIONS (4)
  - DERMATITIS BULLOUS [None]
  - LIVEDO RETICULARIS [None]
  - RESPIRATORY DISORDER [None]
  - WEIGHT DECREASED [None]
